FAERS Safety Report 16845009 (Version 1)
Quarter: 2019Q3

REPORT INFORMATION
  Report Type: Spontaneous
  Country: CA (occurrence: CA)
  Receive Date: 20190924
  Receipt Date: 20190924
  Transmission Date: 20191005
  Serious: Yes (Hospitalization, Other)
  Sender: FDA-Public Use
  Company Number: CA-PFIZER INC-2019397838

PATIENT
  Age: 46 Year
  Sex: Female

DRUGS (4)
  1. APO-PREDNISONE [Suspect]
     Active Substance: PREDNISONE
     Dosage: UNK
     Route: 048
  2. APO-HYDROXYQUINE [Suspect]
     Active Substance: HYDROXYCHLOROQUINE SULFATE
     Dosage: UNK
     Route: 065
  3. METHOTREXATE SODIUM. [Suspect]
     Active Substance: METHOTREXATE SODIUM
     Dosage: UNK
     Route: 065
  4. SULFASALAZINE. [Suspect]
     Active Substance: SULFASALAZINE
     Dosage: UNK
     Route: 065

REACTIONS (7)
  - Back pain [Recovering/Resolving]
  - Pyrexia [Recovering/Resolving]
  - Synovitis [Recovering/Resolving]
  - Condition aggravated [Recovering/Resolving]
  - Intervertebral discitis [Recovering/Resolving]
  - Transaminases increased [Recovering/Resolving]
  - Circumstance or information capable of leading to medication error [Recovering/Resolving]
